FAERS Safety Report 4705608-1 (Version None)
Quarter: 2005Q3

REPORT INFORMATION
  Report Type: 
  Country: None (occurrence: None)
  Receive Date: 20050701
  Receipt Date: 20050624
  Transmission Date: 20060218
  Serious: Yes (Other)
  Sender: FDA-Public Use
  Company Number: JP-BOEHRINGER INGELHEIM PHARMACEUTICALS, INC.-2005-BP-10885NB

PATIENT
  Age: 54 Year
  Sex: Female

DRUGS (4)
  1. MICARDIS [Suspect]
     Indication: HYPERTENSION
     Route: 048
     Dates: start: 20030623
  2. FLUTIDE [Suspect]
     Route: 055
     Dates: start: 20050623
  3. SEREVENT [Concomitant]
     Route: 055
     Dates: start: 20050507
  4. BRONICA [Concomitant]
     Route: 048
     Dates: start: 20041229

REACTIONS (1)
  - ALOPECIA [None]
